FAERS Safety Report 24186576 (Version 1)
Quarter: 2024Q3

REPORT INFORMATION
  Report Type: Spontaneous
  Country: US (occurrence: US)
  Receive Date: 20240808
  Receipt Date: 20240808
  Transmission Date: 20241016
  Serious: Yes (Other)
  Sender: MSN LABORATORIES
  Company Number: US-MSNLABS-2024MSNLIT01698

PATIENT

DRUGS (2)
  1. LACOSAMIDE [Suspect]
     Active Substance: LACOSAMIDE
     Indication: Seizure
     Dosage: DAILY
     Route: 065
  2. LACOSAMIDE [Suspect]
     Active Substance: LACOSAMIDE
     Dosage: DAILY
     Route: 065

REACTIONS (5)
  - Bundle branch block right [Recovering/Resolving]
  - Bundle branch block left [Recovering/Resolving]
  - Atrioventricular block complete [Recovering/Resolving]
  - Atrioventricular block first degree [Recovering/Resolving]
  - Syncope [Recovering/Resolving]
